FAERS Safety Report 12713126 (Version 1)
Quarter: 2016Q3

REPORT INFORMATION
  Report Type: Spontaneous
  Country: US (occurrence: US)
  Receive Date: 20160902
  Receipt Date: 20160902
  Transmission Date: 20161109
  Serious: No
  Sender: FDA-Public Use
  Company Number: US-PFIZER INC-2016401725

PATIENT
  Age: 74 Year
  Sex: Female
  Weight: 68 kg

DRUGS (2)
  1. LISINOPRIL. [Concomitant]
     Active Substance: LISINOPRIL
     Indication: BLOOD PRESSURE MEASUREMENT
     Dosage: 120 MG, 2X/DAY (ONE IN THE EVENING AND ONE IN THE MORNING)
  2. LATANOPROST. [Suspect]
     Active Substance: LATANOPROST
     Dosage: 125 MCG/2.5ML, ONE DROP
     Route: 047
     Dates: start: 20160822

REACTIONS (2)
  - Eye pain [Recovering/Resolving]
  - Headache [Recovering/Resolving]

NARRATIVE: CASE EVENT DATE: 20160823
